FAERS Safety Report 5503453-0 (Version None)
Quarter: 2007Q4

REPORT INFORMATION
  Report Type: 
  Country: None (occurrence: None)
  Receive Date: 20071031
  Receipt Date: 20071019
  Transmission Date: 20080405
  Serious: Yes (Other)
  Sender: FDA-Public Use
  Company Number: US-PFIZER INC-2007088697

PATIENT
  Sex: Male
  Weight: 104.3 kg

DRUGS (8)
  1. DILANTIN [Suspect]
     Indication: CONVULSION
     Dosage: DAILY DOSE:300MG
  2. PHENYTOIN [Suspect]
     Indication: CONVULSION
     Dates: start: 20070101, end: 20070101
  3. PROZAC [Concomitant]
  4. LOTREL [Concomitant]
  5. PHENOBARBITAL TAB [Concomitant]
  6. LASIX [Concomitant]
  7. XANAX [Concomitant]
  8. AMITRIPTYLINE HCL [Concomitant]

REACTIONS (6)
  - ANTICONVULSANT DRUG LEVEL DECREASED [None]
  - AORTIC ANEURYSM [None]
  - CONVULSION [None]
  - GRAND MAL CONVULSION [None]
  - INTERCEPTED DRUG DISPENSING ERROR [None]
  - PROSTATE CANCER [None]
